FAERS Safety Report 5322525-7 (Version None)
Quarter: 2007Q2

REPORT INFORMATION
  Report Type: 
  Country: None (occurrence: None)
  Receive Date: 20070511
  Receipt Date: 20070508
  Transmission Date: 20071010
  Serious: Yes (Life-Threatening, Hospitalization, Disabling)
  Sender: FDA-Public Use
  Company Number: PHFR2004IE01842

PATIENT
  Age: 45 Year
  Sex: Female

DRUGS (7)
  1. CLOZARIL [Suspect]
     Indication: SCHIZOPHRENIA
     Dosage: 325MG/DAY
     Route: 048
     Dates: start: 19971020
  2. CLOZARIL [Suspect]
     Dosage: 450MG AM / 300MG PM
     Route: 048
  3. ARIPIPRAZOLE [Concomitant]
     Indication: SCHIZOPHRENIA
     Dosage: 10 MG, QD
     Route: 048
     Dates: start: 20060928
  4. CITALOPRAM HYDROBROMIDE [Concomitant]
     Indication: DEPRESSION
     Dosage: 30 MG, QD
     Route: 048
     Dates: start: 20050920
  5. LOPRAZOLAM [Concomitant]
     Indication: ANXIETY
     Dosage: 0.25 MG, PRN
     Route: 048
  6. LANSOPRAZOLE [Concomitant]
     Indication: DYSPEPSIA
     Dosage: 30MG / DAY
     Route: 048
     Dates: start: 20070201
  7. GALFER [Concomitant]
     Indication: ANAEMIA
     Dosage: UNK, QD
     Route: 048
     Dates: start: 20070201

REACTIONS (9)
  - ATRIAL SEPTAL DEFECT REPAIR [None]
  - CIRCULATORY COLLAPSE [None]
  - DYSPNOEA [None]
  - INFECTION [None]
  - LIFE SUPPORT [None]
  - NEUTROPHIL COUNT INCREASED [None]
  - PALPITATIONS [None]
  - VENTRICULAR TACHYCARDIA [None]
  - WHITE BLOOD CELL COUNT INCREASED [None]
